FAERS Safety Report 8106196-2 (Version None)
Quarter: 2012Q1

REPORT INFORMATION
  Report Type: 
  Country: None (occurrence: None)
  Receive Date: 20120130
  Receipt Date: 20120124
  Transmission Date: 20120608
  Serious: Yes (Death, Hospitalization)
  Sender: FDA-Public Use
  Company Number: 1000026623

PATIENT
  Age: 92 Year
  Sex: Male

DRUGS (15)
  1. SINGULAIR (MONTELUKAST SODIUM) (MONTELUKAST SODIUM) [Concomitant]
  2. DEXILANT (DEXLANSOPRAZOLE) (DEXLANSOPRAZOLE) [Concomitant]
  3. SIMVASTATIN [Concomitant]
  4. AMLODIPINE [Concomitant]
  5. ADVAIR (FLUTICASONE)(FLUTICASONE) [Concomitant]
  6. DALIRESP [Suspect]
     Indication: CHRONIC OBSTRUCTIVE PULMONARY DISEASE
     Dosage: 500 MCG (500 MCG,L IN 1 D),ORAL
     Route: 048
     Dates: start: 20111223, end: 20111223
  7. ZYRTEC [Concomitant]
  8. COLACE(DOCUSATE SODIUM) ( DOCUSATE SODIUM) [Concomitant]
  9. DILANTIN [Concomitant]
  10. SPIRIVA (TIOTROPIUM BROMIDE) (TIOTROPIUM BROMIDE) [Concomitant]
  11. FLOMAX ( TAMSULOS IN) ( TAMSULOSIN) [Concomitant]
  12. SYMBICORT (BUDESONIDE, FORMOTEROL)(BUDESONIDE, FORMOTEROL) [Concomitant]
  13. THEODUR (THEOPHYLLINE) (THEOPHYLLINE) [Concomitant]
  14. LANTUS(INSULIN GLARGINE) (INSULIN GLARGINE) [Concomitant]
  15. ALBUTEROL (ALBUTEROL) (ALBUTEROL) [Concomitant]

REACTIONS (14)
  - CARDIAC ARREST [None]
  - WHEEZING [None]
  - BLOOD GLUCOSE INCREASED [None]
  - BLOOD UREA INCREASED [None]
  - RALES [None]
  - METABOLIC ACIDOSIS [None]
  - GALLBLADDER ENLARGEMENT [None]
  - GASTROINTESTINAL INFLAMMATION [None]
  - BLOOD BILIRUBIN INCREASED [None]
  - HYPERLIPIDAEMIA [None]
  - ASPARTATE AMINOTRANSFERASE INCREASED [None]
  - PANCREATITIS ACUTE [None]
  - ALANINE AMINOTRANSFERASE INCREASED [None]
  - UNEVALUABLE EVENT [None]
